FAERS Safety Report 20671148 (Version 1)
Quarter: 2022Q2

REPORT INFORMATION
  Report Type: Spontaneous
  Country: HR (occurrence: HR)
  Receive Date: 20220404
  Receipt Date: 20220404
  Transmission Date: 20220720
  Serious: Yes (Other)
  Sender: FDA-Public Use
  Company Number: None

PATIENT
  Age: 45 Year
  Sex: Male

DRUGS (4)
  1. PANTOPRAZOLE [Suspect]
     Active Substance: PANTOPRAZOLE
     Dosage: 760 MILLIGRAM, QD
     Route: 048
     Dates: start: 202110, end: 202110
  2. IBUPROFEN [Suspect]
     Active Substance: IBUPROFEN
     Dosage: 18 GRAM, QD
     Route: 048
     Dates: start: 202110, end: 202110
  3. ACETAMINOPHEN\TRAMADOL HYDROCHLORIDE [Suspect]
     Active Substance: ACETAMINOPHEN\TRAMADOL HYDROCHLORIDE
     Dosage: 39000/4500 MILLIGRAM, QD
     Route: 048
     Dates: start: 202110, end: 202110
  4. ZOLPIDEM TARTRATE [Suspect]
     Active Substance: ZOLPIDEM TARTRATE
     Dosage: 150 MILLIGRAM, QD
     Route: 048
     Dates: start: 202110, end: 202110

REACTIONS (3)
  - Intentional overdose [Unknown]
  - Suicide attempt [Unknown]
  - Agitation [Recovered/Resolved]

NARRATIVE: CASE EVENT DATE: 20211001
